FAERS Safety Report 5883428-2 (Version None)
Quarter: 2008Q3

REPORT INFORMATION
  Report Type: 
  Country: None (occurrence: None)
  Receive Date: 20080915
  Receipt Date: 20080905
  Transmission Date: 20090109
  Serious: Yes (Hospitalization)
  Sender: FDA-Public Use
  Company Number: CA-BAYER-200833175NA

PATIENT
  Age: 27 Year
  Sex: Female
  Weight: 65 kg

DRUGS (4)
  1. CIPRO [Suspect]
     Indication: DRUG USE FOR UNKNOWN INDICATION
  2. FLAGYL [Suspect]
     Indication: DRUG USE FOR UNKNOWN INDICATION
  3. REMICADE [Suspect]
     Indication: DRUG USE FOR UNKNOWN INDICATION
     Route: 042
  4. SOLU-CORTEF [Concomitant]
     Route: 030

REACTIONS (6)
  - ASTHENIA [None]
  - CROHN'S DISEASE [None]
  - DEHYDRATION [None]
  - DIARRHOEA [None]
  - EATING DISORDER [None]
  - MALAISE [None]
